FAERS Safety Report 10309995 (Version 1)
Quarter: 2014Q3

REPORT INFORMATION
  Report Type: Spontaneous
  Country: AU (occurrence: AU)
  Receive Date: 20140717
  Receipt Date: 20140717
  Transmission Date: 20150326
  Serious: Yes (Other)
  Sender: FDA-Public Use
  Company Number: AU-TEVA-494987ISR

PATIENT
  Sex: Male

DRUGS (9)
  1. KARVEA [Concomitant]
     Active Substance: IRBESARTAN
  2. PANADOL [Concomitant]
     Active Substance: ACETAMINOPHEN
  3. TARGIN [Concomitant]
     Active Substance: NALOXONE HYDROCHLORIDE\OXYCODONE HYDROCHLORIDE
  4. AZILECT [Suspect]
     Active Substance: RASAGILINE MESYLATE
  5. PROPRANOLOL [Concomitant]
     Active Substance: PROPRANOLOL\PROPRANOLOL HYDROCHLORIDE
  6. PANADEINE FORTE (PARACETAMOL AND CODEIN) [Concomitant]
  7. CANACORT [Concomitant]
  8. MOGADON [Concomitant]
     Active Substance: NITRAZEPAM
  9. PROGOUT [Concomitant]
     Active Substance: ALLOPURINOL

REACTIONS (2)
  - Neutropenia [Recovering/Resolving]
  - Thrombocytopenia [Recovering/Resolving]
